FAERS Safety Report 17413361 (Version 2)
Quarter: 2020Q1

REPORT INFORMATION
  Report Type: Spontaneous
  Country: US (occurrence: US)
  Receive Date: 20200213
  Receipt Date: 20200221
  Transmission Date: 20200409
  Serious: No
  Sender: FDA-Public Use
  Company Number: US-TEVA-2020-US-1183296

PATIENT
  Sex: Female

DRUGS (2)
  1. SYNRIBO [Suspect]
     Active Substance: OMACETAXINE MEPESUCCINATE
     Indication: CHRONIC MYELOID LEUKAEMIA
     Dosage: 1.6MG/0.46ML, BID FOR 14 DAYS OF A 28 DAY CYCLE
     Route: 065
  2. SYNRIBO [Suspect]
     Active Substance: OMACETAXINE MEPESUCCINATE
     Indication: DRUG THERAPY

REACTIONS (3)
  - Feeling abnormal [Unknown]
  - Nausea [Recovered/Resolved]
  - Abdominal discomfort [Unknown]
